FAERS Safety Report 9729000 (Version 1)
Quarter: 2013Q4

REPORT INFORMATION
  Report Type: Spontaneous
  Country: US (occurrence: US)
  Receive Date: 20131204
  Receipt Date: 20131204
  Transmission Date: 20140711
  Serious: No
  Sender: FDA-Public Use
  Company Number: US-ENDO PHARMACEUTICALS INC.-METH20120016

PATIENT
  Sex: Female

DRUGS (1)
  1. METHYLPREDNISOLONE [Suspect]
     Indication: BACK PAIN
     Dosage: DOSEPACK
     Route: 048
     Dates: start: 2011, end: 2011

REACTIONS (3)
  - Drug dispensing error [Recovered/Resolved]
  - Expired drug administered [Recovered/Resolved]
  - Insomnia [Recovered/Resolved]
